FAERS Safety Report 8977746 (Version 1)
Quarter: 2012Q4

REPORT INFORMATION
  Report Type: 
  Country: US (occurrence: US)
  Receive Date: 20121220
  Receipt Date: 20121220
  Transmission Date: 20130627
  Serious: No
  Sender: FDA-Public Use
  Company Number: US-PFIZER INC-2012321825

PATIENT
  Age: 70 Year
  Sex: Male

DRUGS (5)
  1. XALKORI [Suspect]
     Indication: ADENOCARCINOMA OF LUNG
     Dosage: 250 mg, 2x/day
     Dates: start: 201201
  2. WARFARIN [Concomitant]
     Indication: ATRIAL FIBRILLATION
     Dosage: 4 mg, daily
  3. METOPROLOL [Concomitant]
     Indication: ATRIAL FIBRILLATION
     Dosage: 25 mg, 2x/day
  4. ASPIRIN [Concomitant]
     Dosage: 1 mg, daily
  5. ATORVASTATIN [Concomitant]
     Indication: HYPERCHOLESTEROLEMIA
     Dosage: 40 mg, daily

REACTIONS (2)
  - Disease progression [Unknown]
  - Lung adenocarcinoma [Unknown]
